FAERS Safety Report 23541154 (Version 2)
Quarter: 2024Q2

REPORT INFORMATION
  Report Type: Spontaneous
  Country: US (occurrence: US)
  Receive Date: 20240219
  Receipt Date: 20240517
  Transmission Date: 20240716
  Serious: No
  Sender: FDA-Public Use
  Company Number: US-Stemline Therapeutics, Inc.-2024ST000227

PATIENT
  Age: 69 Year
  Sex: Female

DRUGS (2)
  1. ORSERDU [Suspect]
     Active Substance: ELACESTRANT
     Indication: Product used for unknown indication
     Dosage: 86MG ONCE DAILY
     Route: 048
     Dates: start: 20231121
  2. ORSERDU [Suspect]
     Active Substance: ELACESTRANT
     Route: 048
     Dates: start: 20231121

REACTIONS (5)
  - Paraesthesia [Unknown]
  - Paraesthesia [Unknown]
  - Tumour marker increased [Unknown]
  - Blood cholesterol increased [Unknown]
  - Drug ineffective [Unknown]
